FAERS Safety Report 11656493 (Version 2)
Quarter: 2015Q4

REPORT INFORMATION
  Report Type: Spontaneous
  Country: FR (occurrence: FR)
  Receive Date: 20151023
  Receipt Date: 20151209
  Transmission Date: 20160304
  Serious: Yes (Other)
  Sender: FDA-Public Use
  Company Number: IT-009507513-1510FRA010591

PATIENT
  Age: 79 Year
  Sex: Female

DRUGS (10)
  1. RIVAROXABAN [Suspect]
     Active Substance: RIVAROXABAN
  2. FLECAINIDE [Concomitant]
     Active Substance: FLECAINIDE
  3. TROSPIUM CHLORIDE. [Concomitant]
     Active Substance: TROSPIUM CHLORIDE
  4. ATENOLOL. [Concomitant]
     Active Substance: ATENOLOL
  5. METFORMIN [Concomitant]
     Active Substance: METFORMIN HYDROCHLORIDE
  6. SIMVASTATIN. [Suspect]
     Active Substance: SIMVASTATIN
     Route: 048
  7. NADOLOL. [Concomitant]
     Active Substance: NADOLOL
  8. PHYTONADIONE. [Concomitant]
     Active Substance: PHYTONADIONE
  9. RAMIPRIL. [Concomitant]
     Active Substance: RAMIPRIL
  10. FLUINDIONE [Concomitant]
     Active Substance: FLUINDIONE

REACTIONS (1)
  - Drug-induced liver injury [Unknown]
